FAERS Safety Report 21264866 (Version 1)
Quarter: 2022Q3

REPORT INFORMATION
  Report Type: Spontaneous
  Country: CN (occurrence: None)
  Receive Date: 20220829
  Receipt Date: 20220829
  Transmission Date: 20221026
  Serious: Yes (Other)
  Sender: FDA-Public Use
  Company Number: CN-ROCHE-3168687

PATIENT

DRUGS (9)
  1. MABTHERA [Suspect]
     Active Substance: RITUXIMAB
     Indication: B-cell lymphoma
     Dosage: POLA-BR
     Route: 065
     Dates: start: 20211111
  2. POLATUZUMAB VEDOTIN [Suspect]
     Active Substance: POLATUZUMAB VEDOTIN
     Indication: B-cell lymphoma
     Dosage: POLA-BR
     Route: 065
     Dates: start: 20211111
  3. BENDAMUSTINE [Concomitant]
     Active Substance: BENDAMUSTINE
     Indication: B-cell lymphoma
     Dosage: POLA-BR
     Dates: start: 20211111, end: 20211113
  4. IBRUTINIB [Concomitant]
     Active Substance: IBRUTINIB
     Indication: B-cell lymphoma
     Dosage: 420MG PER DAY
     Dates: start: 20211108
  5. IBRUTINIB [Concomitant]
     Active Substance: IBRUTINIB
     Dosage: 140MG PER DAY
     Dates: start: 20211202
  6. IBRUTINIB [Concomitant]
     Active Substance: IBRUTINIB
     Dosage: 420MG PER DAY
     Dates: start: 20211226
  7. FLUDARABINE [Concomitant]
     Active Substance: FLUDARABINE PHOSPHATE
     Indication: B-cell lymphoma
     Dates: start: 20211202, end: 20211204
  8. CYCLOPHOSPHAMIDE [Concomitant]
     Active Substance: CYCLOPHOSPHAMIDE
     Indication: B-cell lymphoma
     Dates: start: 20211202, end: 20211204
  9. POSACONAZOLE [Concomitant]
     Active Substance: POSACONAZOLE
     Indication: B-cell lymphoma
     Dates: start: 20211202, end: 20211226

REACTIONS (3)
  - Pyrexia [Unknown]
  - Cytokine release syndrome [Unknown]
  - Immune effector cell-associated neurotoxicity syndrome [Unknown]
